FAERS Safety Report 4890280-0 (Version None)
Quarter: 2006Q1

REPORT INFORMATION
  Report Type: 
  Country: None (occurrence: None)
  Receive Date: 20060124
  Receipt Date: 20011003
  Transmission Date: 20060701
  Serious: Yes (Hospitalization, Disabling)
  Sender: FDA-Public Use
  Company Number: US-MERCK-01100586

PATIENT
  Age: 78 Year
  Sex: Female
  Weight: 68 kg

DRUGS (4)
  1. VIOXX [Suspect]
     Indication: OSTEOARTHRITIS
     Route: 048
     Dates: start: 19990101, end: 20010712
  2. VIOXX [Suspect]
     Route: 048
     Dates: start: 19990101, end: 20010712
  3. VIOXX [Suspect]
     Route: 048
     Dates: start: 20001228
  4. ASPIRIN [Concomitant]
     Route: 065

REACTIONS (13)
  - ABDOMINAL PAIN [None]
  - ARTHROPATHY [None]
  - CARPAL TUNNEL SYNDROME [None]
  - CEREBROVASCULAR ACCIDENT [None]
  - CUBITAL TUNNEL SYNDROME [None]
  - DIABETES MELLITUS [None]
  - EPISTAXIS [None]
  - FEMUR FRACTURE [None]
  - KNEE ARTHROPLASTY [None]
  - OVERDOSE [None]
  - PLANTAR FASCIITIS [None]
  - ROTATOR CUFF SYNDROME [None]
  - THALAMUS HAEMORRHAGE [None]
